FAERS Safety Report 10169378 (Version 1)
Quarter: 2014Q2

REPORT INFORMATION
  Report Type: Spontaneous
  Country: US (occurrence: US)
  Receive Date: 20140513
  Receipt Date: 20140513
  Transmission Date: 20141212
  Serious: No
  Sender: FDA-Public Use
  Company Number: US-ENDO PHARMACEUTICALS INC.-ENDN20130004

PATIENT
  Age: 71 Year
  Sex: Female

DRUGS (1)
  1. ENDODAN [Suspect]
     Indication: PROCEDURAL PAIN
     Dosage: UNK
     Route: 048
     Dates: start: 2009, end: 2009

REACTIONS (1)
  - Insomnia [Recovered/Resolved]
